FAERS Safety Report 8079946-1 (Version None)
Quarter: 2012Q1

REPORT INFORMATION
  Report Type: 
  Country: None (occurrence: None)
  Receive Date: 20120128
  Receipt Date: 20110802
  Transmission Date: 20120608
  Serious: No
  Sender: FDA-Public Use
  Company Number: US-ABBOTT-11P-163-0843500-00

PATIENT
  Age: 37 Year
  Sex: Female

DRUGS (4)
  1. RANITADINE [Concomitant]
     Indication: DYSPEPSIA
     Dosage: DAILY
  2. ALBUTEROL [Concomitant]
     Indication: ASTHMA
  3. PRED MILD EYE GTTS [Concomitant]
     Indication: PRODUCT USED FOR UNKNOWN INDICATION
  4. HUMIRA [Suspect]
     Indication: CROHN'S DISEASE
     Dosage: DAY 1
     Dates: start: 20110726

REACTIONS (3)
  - DIZZINESS [None]
  - FATIGUE [None]
  - CHEST DISCOMFORT [None]
